FAERS Safety Report 6595287-3 (Version None)
Quarter: 2010Q1

REPORT INFORMATION
  Report Type: 
  Country: None (occurrence: None)
  Receive Date: 20100212
  Receipt Date: 20100127
  Transmission Date: 20100710
  Serious: Yes (Hospitalization)
  Sender: FDA-Public Use
  Company Number: 006115

PATIENT
  Sex: Male
  Weight: 47.7 kg

DRUGS (5)
  1. CERTOLIZUMAB PEGOL [Suspect]
     Indication: CROHN'S DISEASE
     Dosage: (200 MG 1X/2 WEEKS SUBCUTANEOUS)
     Route: 058
     Dates: start: 20090818
  2. PREVACID [Concomitant]
  3. COSOPT [Concomitant]
  4. PRENATAL VITAMINS /01549301/ [Concomitant]
  5. TYLENOL (CAPLET) [Concomitant]

REACTIONS (2)
  - SCROTAL ABSCESS [None]
  - TOOTHACHE [None]
